FAERS Safety Report 9390723 (Version 2)
Quarter: 2013Q3

REPORT INFORMATION
  Report Type: Report from Study
  Country: ES (occurrence: ES)
  Receive Date: 20130709
  Receipt Date: 20130722
  Transmission Date: 20140515
  Serious: Yes (Hospitalization)
  Sender: FDA-Public Use
  Company Number: ES-ROCHE-1243343

PATIENT
  Age: 63 Year
  Sex: Male
  Weight: 99 kg

DRUGS (7)
  1. RIBAVIRIN [Suspect]
     Indication: CHRONIC HEPATITIS C
     Route: 048
     Dates: start: 20130322
  2. BLINDED BI 207127 [Suspect]
     Indication: CHRONIC HEPATITIS C
     Route: 048
     Dates: start: 20130322
  3. BLINDED BI 201335 [Suspect]
     Indication: CHRONIC HEPATITIS C
     Route: 048
     Dates: start: 20130322
  4. PRAVASTATIN [Concomitant]
     Indication: PRODUCT USED FOR UNKNOWN INDICATION
     Route: 065
     Dates: start: 20130322
  5. LEVOTHYROXINE SODIUM [Concomitant]
     Indication: THYROIDECTOMY
     Route: 048
     Dates: start: 2005
  6. OMEPRAZOL [Concomitant]
     Indication: PROPHYLAXIS
     Route: 048
  7. SIMVASTATIN [Concomitant]
     Indication: PRODUCT USED FOR UNKNOWN INDICATION
     Route: 048
     Dates: end: 20130325

REACTIONS (2)
  - Lymphadenopathy [Recovered/Resolved]
  - Abdominal discomfort [Recovered/Resolved]
